FAERS Safety Report 9449035 (Version 1)
Quarter: 2013Q3

REPORT INFORMATION
  Report Type: Spontaneous
  Country: FR (occurrence: FR)
  Receive Date: 20130808
  Receipt Date: 20130808
  Transmission Date: 20140515
  Serious: Yes (Death, Hospitalization)
  Sender: FDA-Public Use
  Company Number: FR-VERTEX PHARMACEUTICALS INC-2013-008656

PATIENT
  Age: 84 Year
  Sex: Male

DRUGS (7)
  1. INCIVO [Suspect]
     Indication: CHRONIC HEPATITIS C
     Dosage: TABLET
     Dates: start: 2012
  2. INTERFERON [Suspect]
     Indication: CHRONIC HEPATITIS C
     Dates: start: 2011
  3. RIBAVIRIN [Suspect]
     Indication: CHRONIC HEPATITIS C
     Dates: start: 2011
  4. MODURETIC [Concomitant]
     Indication: HYPERTENSION
     Dosage: DOSAGE FORM: UNSPECIFIED
  5. ATENOLOL [Concomitant]
     Indication: HYPERTENSION
     Dosage: DOSAGE FORM: TABLET
     Route: 048
  6. KARDEGIC [Concomitant]
     Indication: HYPERTENSION
     Dosage: DOSAGE FORM: TABLET
     Route: 048
  7. CRESTOR [Concomitant]
     Indication: HYPERTENSION
     Dosage: DOSAGE FORM: PELLET
     Route: 048

REACTIONS (10)
  - Aortic aneurysm [Recovered/Resolved]
  - Haemorrhage intracranial [Fatal]
  - Pneumonia aspiration [Not Recovered/Not Resolved]
  - Rhabdomyolysis [Recovered/Resolved]
  - Haematuria [Recovered/Resolved]
  - Fall [Not Recovered/Not Resolved]
  - Skin lesion [Not Recovered/Not Resolved]
  - Thrombocytopenia [Recovered/Resolved]
  - Dermabrasion [Not Recovered/Not Resolved]
  - Subcutaneous haematoma [Not Recovered/Not Resolved]
